FAERS Safety Report 13199923 (Version 2)
Quarter: 2017Q1

REPORT INFORMATION
  Report Type: Spontaneous
  Country: US (occurrence: US)
  Receive Date: 20170208
  Receipt Date: 20170302
  Transmission Date: 20170428
  Serious: No
  Sender: FDA-Public Use
  Company Number: US-ACTELION-A-US2017-149602

PATIENT
  Age: 45 Year
  Sex: Female

DRUGS (18)
  1. AZITHROMYCIN ANHYDROUS. [Concomitant]
     Active Substance: AZITHROMYCIN ANHYDROUS
  2. PIROXICAM. [Concomitant]
     Active Substance: PIROXICAM
  3. PRAVASTATIN. [Concomitant]
     Active Substance: PRAVASTATIN
  4. AMOXICILLIN AND CLAVULANATE POTASSIUM [Concomitant]
     Active Substance: AMOXICILLIN\CLAVULANATE POTASSIUM
  5. FLUTICASONE PROPIONATE. [Concomitant]
     Active Substance: FLUTICASONE PROPIONATE
  6. TRIMETHOPRIM. [Concomitant]
     Active Substance: TRIMETHOPRIM
  7. MONTELUKAST SODIUM. [Concomitant]
     Active Substance: MONTELUKAST SODIUM
  8. OPSUMIT [Suspect]
     Active Substance: MACITENTAN
     Indication: PULMONARY ARTERIAL HYPERTENSION
     Dosage: 10 MG, UNK
     Route: 048
     Dates: start: 20170116
  9. METOPROLOL SUCCINATE. [Concomitant]
     Active Substance: METOPROLOL SUCCINATE
  10. WARFARIN [Concomitant]
     Active Substance: WARFARIN
  11. PREDNISONE. [Concomitant]
     Active Substance: PREDNISONE
  12. RANITIDINE. [Concomitant]
     Active Substance: RANITIDINE
  13. OXYCODONE AND ACETAMINOPHEN [Concomitant]
     Active Substance: ACETAMINOPHEN\OXYCODONE HYDROCHLORIDE
  14. LEVOTHYROXINE. [Concomitant]
     Active Substance: LEVOTHYROXINE
  15. ONDANSETRON [Concomitant]
     Active Substance: ONDANSETRON
  16. CLINDAMYCIN. [Concomitant]
     Active Substance: CLINDAMYCIN
  17. FENTANYL. [Concomitant]
     Active Substance: FENTANYL
  18. TIZANIDINE. [Concomitant]
     Active Substance: TIZANIDINE

REACTIONS (8)
  - Headache [Unknown]
  - Upper respiratory tract infection [Unknown]
  - Cough [Not Recovered/Not Resolved]
  - Pleural effusion [Not Recovered/Not Resolved]
  - Urinary tract infection [Not Recovered/Not Resolved]
  - Sinus disorder [Not Recovered/Not Resolved]
  - Bronchitis [Unknown]
  - Dyspnoea [Not Recovered/Not Resolved]

NARRATIVE: CASE EVENT DATE: 20170203
